FAERS Safety Report 16420664 (Version 1)
Quarter: 2019Q2

REPORT INFORMATION
  Report Type: Spontaneous
  Country: US (occurrence: US)
  Receive Date: 20190506
  Receipt Date: 20190506
  Transmission Date: 20190711
  Serious: No
  Sender: FDA-Public Use
  Company Number: None

PATIENT
  Age: 61 Year
  Sex: Female

DRUGS (1)
  1. OCTREOTIDE PFS 50MCG/ML [Suspect]
     Active Substance: OCTREOTIDE ACETATE
     Indication: ANGIOPATHY
     Dates: start: 20190410, end: 20190410

REACTIONS (2)
  - Diarrhoea [None]
  - Nausea [None]

NARRATIVE: CASE EVENT DATE: 20190410
